FAERS Safety Report 17199384 (Version 1)
Quarter: 2019Q4

REPORT INFORMATION
  Report Type: Other
  Country: US (occurrence: US)
  Receive Date: 20191226
  Receipt Date: 20191226
  Transmission Date: 20200122
  Serious: Yes (Life-Threatening, Hospitalization, Other)
  Sender: FDA-Public Use
  Company Number: US-PHARMACEUTICS INTERNATIONAL, INC.-2078180

PATIENT
  Age: 60 Year
  Sex: Male

DRUGS (1)
  1. POTASSIUM CHLORIDE EXTENDED-RELEASE [Suspect]
     Active Substance: POTASSIUM CHLORIDE
     Indication: PRODUCT USED FOR UNKNOWN INDICATION
     Route: 048

REACTIONS (6)
  - Intentional overdose [Recovered/Resolved]
  - Bradycardia [Unknown]
  - Ileus [Unknown]
  - Cardiac arrest [Recovering/Resolving]
  - Hyperkalaemia [Recovered/Resolved]
  - Dyspnoea [Unknown]
